FAERS Safety Report 9476625 (Version 1)
Quarter: 2013Q3

REPORT INFORMATION
  Report Type: Spontaneous
  Country: US (occurrence: US)
  Receive Date: 20130826
  Receipt Date: 20130826
  Transmission Date: 20140515
  Serious: Yes (Hospitalization)
  Sender: FDA-Public Use
  Company Number: PHHY2013US090402

PATIENT
  Age: 62 Year
  Sex: Male

DRUGS (5)
  1. SULFAMETHOXAZOLE+TRIMETHOPRIM [Suspect]
     Indication: CELLULITIS
     Dosage: UNK UKN, UNK
  2. PRAVASTATIN [Concomitant]
     Dosage: UNK UKN, UNK
  3. INSULIN GLARGINE [Concomitant]
     Dosage: UNK UKN, UNK
  4. INSULIN LISPRO [Concomitant]
     Dosage: UNK UKN, UNK
  5. NAPROXEN [Concomitant]
     Dosage: UNK UKN, UNK

REACTIONS (7)
  - Drug-induced liver injury [Recovering/Resolving]
  - Cholestatic liver injury [Recovering/Resolving]
  - Jaundice [Recovering/Resolving]
  - Malaise [Recovering/Resolving]
  - Chromaturia [Recovering/Resolving]
  - Ocular icterus [Recovering/Resolving]
  - Pseudohyponatraemia [Recovering/Resolving]
